FAERS Safety Report 17990980 (Version 1)
Quarter: 2020Q3

REPORT INFORMATION
  Report Type: Spontaneous
  Country: US (occurrence: US)
  Receive Date: 20200707
  Receipt Date: 20200707
  Transmission Date: 20201103
  Serious: No
  Sender: FDA-Public Use
  Company Number: US-SUN PHARMACEUTICAL INDUSTRIES LTD-2019R1-232802

PATIENT
  Sex: Male
  Weight: 86.18 kg

DRUGS (1)
  1. ATORVASTATIN [Suspect]
     Active Substance: ATORVASTATIN
     Indication: PRODUCT USED FOR UNKNOWN INDICATION
     Dosage: UNK
     Route: 065

REACTIONS (6)
  - Stomatitis [Unknown]
  - Cheilitis [Unknown]
  - Drug hypersensitivity [Unknown]
  - Visual acuity reduced [Unknown]
  - Throat irritation [Unknown]
  - Dyspnoea [Unknown]
